FAERS Safety Report 25596835 (Version 2)
Quarter: 2025Q3

REPORT INFORMATION
  Report Type: Spontaneous
  Country: US (occurrence: US)
  Receive Date: 20250723
  Receipt Date: 20250729
  Transmission Date: 20251021
  Serious: No
  Sender: BAYER HEALTHCARE PHARMACEUTICALS INC.
  Company Number: US-BAYER-2025A097399

PATIENT
  Age: 21 Year
  Sex: Female
  Weight: 87.09 kg

DRUGS (3)
  1. KYLEENA [Suspect]
     Active Substance: LEVONORGESTREL
     Indication: Contraception
     Dosage: 17.5?G/DAY
     Route: 015
     Dates: start: 20220915, end: 20230503
  2. ACCUTANE [Concomitant]
     Active Substance: ISOTRETINOIN
     Route: 048
  3. LO LOESTRIN FE [Concomitant]
     Active Substance: ETHINYL ESTRADIOL\NORETHINDRONE ACETATE
     Route: 048

REACTIONS (3)
  - Abnormal uterine bleeding [None]
  - Dysmenorrhoea [None]
  - Heavy menstrual bleeding [None]
